FAERS Safety Report 11933859 (Version 1)
Quarter: 2016Q1

REPORT INFORMATION
  Report Type: Spontaneous
  Country: PL (occurrence: PL)
  Receive Date: 20160121
  Receipt Date: 20160121
  Transmission Date: 20160526
  Serious: Yes (Other)
  Sender: FDA-Public Use
  Company Number: PL-WATSON-2016-00982

PATIENT
  Age: 60 Year
  Sex: Female

DRUGS (3)
  1. OLANZAPINE. [Concomitant]
     Active Substance: OLANZAPINE
     Indication: SCHIZOPHRENIA
     Dosage: 30 MG, UNK
     Route: 065
  2. LAMOTRIGINE (UNKNOWN) [Interacting]
     Active Substance: LAMOTRIGINE
     Indication: SCHIZOPHRENIA
     Dosage: 25 MG, UNKNOWN
     Route: 065
  3. CLOZAPINE (UNKNOWN) [Suspect]
     Active Substance: CLOZAPINE
     Indication: SCHIZOPHRENIA
     Dosage: 450 MG, DAILY
     Route: 065

REACTIONS (2)
  - Drug interaction [Recovered/Resolved]
  - Agranulocytosis [Recovered/Resolved]
